FAERS Safety Report 19977723 (Version 1)
Quarter: 2021Q4

REPORT INFORMATION
  Report Type: Spontaneous
  Country: US (occurrence: US)
  Receive Date: 20211020
  Receipt Date: 20211020
  Transmission Date: 20220304
  Serious: No
  Sender: FDA-Public Use
  Company Number: US-ALLERGAN-2118233US

PATIENT
  Age: 89 Year
  Sex: Female

DRUGS (2)
  1. LINZESS [Suspect]
     Active Substance: LINACLOTIDE
     Indication: Product used for unknown indication
     Dosage: 2 DF
     Dates: start: 20210519
  2. LINZESS [Suspect]
     Active Substance: LINACLOTIDE
     Dosage: 145 ?G

REACTIONS (2)
  - Drug ineffective [Unknown]
  - Diarrhoea [Unknown]

NARRATIVE: CASE EVENT DATE: 20210519
